FAERS Safety Report 25900895 (Version 1)
Quarter: 2025Q4

REPORT INFORMATION
  Report Type: Spontaneous
  Country: US (occurrence: US)
  Receive Date: 20251009
  Receipt Date: 20251009
  Transmission Date: 20260117
  Serious: Yes (Hospitalization)
  Sender: ROCHE
  Company Number: US-ROCHE-10000404693

PATIENT
  Age: 21 Year
  Sex: Female

DRUGS (2)
  1. RITUXIMAB [Suspect]
     Active Substance: RITUXIMAB
     Indication: Antiphospholipid syndrome
     Route: 065
  2. ECULIZUMAB [Concomitant]
     Active Substance: ECULIZUMAB
     Indication: Antiphospholipid syndrome
     Route: 065

REACTIONS (1)
  - Pneumonia pseudomonal [Unknown]
